FAERS Safety Report 24570016 (Version 10)
Quarter: 2025Q3

REPORT INFORMATION
  Report Type: Spontaneous
  Country: US (occurrence: US)
  Receive Date: 20241031
  Receipt Date: 20250708
  Transmission Date: 20251020
  Serious: Yes (Other)
  Sender: APELLIS PHARMACEUTICALS
  Company Number: US-APELLIS PHARMACEUTICALS-APL-2023-003081

PATIENT
  Weight: 77 kg

DRUGS (34)
  1. SYFOVRE [Suspect]
     Active Substance: PEGCETACOPLAN
     Indication: Dry age-related macular degeneration
     Route: 031
     Dates: start: 20230922, end: 20230922
  2. SYFOVRE [Suspect]
     Active Substance: PEGCETACOPLAN
     Indication: Stargardt^s disease
  3. IZERVAY [Suspect]
     Active Substance: AVACINCAPTAD PEGOL SODIUM
     Indication: Dry age-related macular degeneration
     Dates: start: 20230926
  4. ONDANSETRON [Concomitant]
     Active Substance: ONDANSETRON
     Indication: Product used for unknown indication
     Route: 048
  5. ONDANSETRON [Concomitant]
     Active Substance: ONDANSETRON
  6. OMEPRAZOLE [Concomitant]
     Active Substance: OMEPRAZOLE
     Indication: Product used for unknown indication
     Dosage: QD
     Route: 048
  7. OMEPRAZOLE [Concomitant]
     Active Substance: OMEPRAZOLE
     Dosage: 40MG DAILY, ORAL ROUTE, BEFORE MEAL
     Route: 048
  8. DIAMOX SEQUELS [Concomitant]
     Active Substance: ACETAZOLAMIDE
     Indication: Product used for unknown indication
     Dosage: TAKE 1 CAPSULE (500 MG TOTAL) BY MOUTH IN THE MORNING?AND 1 CAPSULE (500 MG TOTAL) BEFORE BEDTIME...
     Route: 048
     Dates: start: 20231005, end: 20231008
  9. DIAMOX SEQUELS [Concomitant]
     Active Substance: ACETAZOLAMIDE
  10. ACETAMINOPHEN AND CODEINE [Concomitant]
     Active Substance: ACETAMINOPHEN\CODEINE PHOSPHATE
     Indication: Pain
     Dosage: 300-30 MG / TAKE 1 TABLET BY MOUTH 3 (THREE) TIMES A DAY IF NEEDED FOR SEVERE PAIN FOR UP TO 5 DA...
     Route: 048
  11. MEDROL [Concomitant]
     Active Substance: METHYLPREDNISOLONE
     Indication: Product used for unknown indication
     Dosage: 1 TABLET DAILY
     Route: 048
  12. ADDERALL [Concomitant]
     Active Substance: AMPHETAMINE ASPARTATE\AMPHETAMINE SULFATE\DEXTROAMPHETAMINE SACCHARATE\DEXTROAMPHETAMINE SULFATE
     Indication: Product used for unknown indication
     Dosage: TAKE 1 TABLET (10 MG TOTAL) BY MOUTH TWO(2) TIMES DAILY
     Route: 048
  13. ADDERALL [Concomitant]
     Active Substance: AMPHETAMINE ASPARTATE\AMPHETAMINE SULFATE\DEXTROAMPHETAMINE SACCHARATE\DEXTROAMPHETAMINE SULFATE
     Route: 048
  14. PREDNISOLONE ACETATE [Concomitant]
     Active Substance: PREDNISOLONE ACETATE
     Indication: Product used for unknown indication
     Dosage: APPLY OR INSTILL 1 DROP INTO BOTH EYES TWO(2) TIMES DAILY
     Route: 047
  15. PREDNISOLONE ACETATE [Concomitant]
     Active Substance: PREDNISOLONE ACETATE
     Dosage: 1 DROP OU QID
     Route: 050
  16. METHOTREXATE [Concomitant]
     Active Substance: METHOTREXATE
     Indication: Product used for unknown indication
     Dosage: TAKE 6 TABLETS (15 MG TOTAL) BY MOUTH ONCE EVERY WEEK (ON THE SAME DAY EACH WEEK)
     Route: 048
     Dates: start: 20240919
  17. METHOTREXATE [Concomitant]
     Active Substance: METHOTREXATE
  18. HUMIRA [Concomitant]
     Active Substance: ADALIMUMAB
     Indication: Product used for unknown indication
     Dosage: INJECT 40 MG INTRAMUSCULARLY ONCE EVERY WEEK (ON THE SAME DAY EACH WEEK)
     Route: 030
  19. FOLVITE [Concomitant]
     Active Substance: FOLIC ACID
     Indication: Product used for unknown indication
     Dosage: TAKE 1 TABLET (1 MG TOTAL) BY MOUTH EVERY DAY
     Route: 048
     Dates: start: 20241022
  20. FOLVITE [Concomitant]
     Active Substance: FOLIC ACID
  21. PROTONIX [Concomitant]
     Active Substance: PANTOPRAZOLE SODIUM
     Indication: Product used for unknown indication
  22. VITAMIN C [Concomitant]
     Active Substance: ASCORBIC ACID
     Indication: Product used for unknown indication
  23. AVASTIN [Concomitant]
     Active Substance: BEVACIZUMAB
     Indication: Dry age-related macular degeneration
  24. KENALOG [Concomitant]
     Active Substance: TRIAMCINOLONE ACETONIDE
     Indication: Dry age-related macular degeneration
  25. TRAMADOL HCL [Concomitant]
     Active Substance: TRAMADOL HYDROCHLORIDE
     Indication: Product used for unknown indication
  26. ACETAMINOPHEN [Concomitant]
     Active Substance: ACETAMINOPHEN
     Indication: Product used for unknown indication
  27. ZOLOFT [Concomitant]
     Active Substance: SERTRALINE HYDROCHLORIDE
     Indication: Product used for unknown indication
     Route: 048
  28. ZOLOFT [Concomitant]
     Active Substance: SERTRALINE HYDROCHLORIDE
     Dosage: TAKE 1 TABLET DAILY
     Route: 048
  29. CITALOPRAM [Concomitant]
     Active Substance: CITALOPRAM
     Indication: Product used for unknown indication
     Route: 048
  30. IBUPROFEN [Concomitant]
     Active Substance: IBUPROFEN
     Indication: Product used for unknown indication
     Route: 048
  31. SCOPOLAMINE [Concomitant]
     Active Substance: SCOPOLAMINE
     Indication: Product used for unknown indication
  32. NITROFURANTOIN MONOHYDRATE MACROCRYSTALS [Concomitant]
     Active Substance: NITROFURANTOIN\NITROFURANTOIN MONOHYDRATE
     Indication: Product used for unknown indication
  33. SULFAMETHOXAZOLE\TRIMETHOPRIM [Concomitant]
     Active Substance: SULFAMETHOXAZOLE\TRIMETHOPRIM
  34. DEXTROAMPHETAMINE [Concomitant]
     Active Substance: DEXTROAMPHETAMINE
     Indication: Product used for unknown indication

REACTIONS (33)
  - Retinal ischaemia [Unknown]
  - Glaucoma [Unknown]
  - Retinal occlusive vasculitis [Recovering/Resolving]
  - Retinal vasculitis [Recovering/Resolving]
  - Hypotony of eye [Unknown]
  - Vitritis [Unknown]
  - Vitritis [Unknown]
  - Eye pain [Unknown]
  - Blindness unilateral [Unknown]
  - Choroiditis [Unknown]
  - Ocular hypertension [Not Recovered/Not Resolved]
  - Corneal oedema [Unknown]
  - Diarrhoea [Recovered/Resolved]
  - Off label use [Unknown]
  - Chorioretinitis [Unknown]
  - Conjunctival oedema [Unknown]
  - Barrett^s oesophagus [Unknown]
  - Alanine aminotransferase increased [Unknown]
  - Hiatus hernia [Unknown]
  - Weight increased [Unknown]
  - Attention deficit hyperactivity disorder [Unknown]
  - Fatigue [Unknown]
  - Generalised anxiety disorder [Unknown]
  - Panic disorder [Unknown]
  - Immunosuppression [Unknown]
  - Hepatic enzyme increased [Unknown]
  - Uveitis [Unknown]
  - Retinal infarction [Unknown]
  - Necrotising retinitis [Unknown]
  - Eye infarction [Unknown]
  - Episcleritis [Unknown]
  - Bullous keratopathy [Unknown]
  - Cataract [Unknown]

NARRATIVE: CASE EVENT DATE: 20231001
